FAERS Safety Report 22609898 (Version 3)
Quarter: 2023Q4

REPORT INFORMATION
  Report Type: Spontaneous
  Country: US (occurrence: US)
  Receive Date: 20230616
  Receipt Date: 20231220
  Transmission Date: 20240110
  Serious: Yes (Other)
  Sender: FDA-Public Use
  Company Number: US-PFIZER INC-PV202300104842

PATIENT
  Age: 56 Year
  Sex: Female

DRUGS (5)
  1. TRANEXAMIC ACID [Suspect]
     Active Substance: TRANEXAMIC ACID
     Indication: Face lift
     Dosage: 1G MIXED INTO 350CC OF TUMESCENT
  2. TRANEXAMIC ACID [Suspect]
     Active Substance: TRANEXAMIC ACID
     Indication: Neck plastic surgery
  3. EPINEPHRINE [Concomitant]
     Active Substance: EPINEPHRINE
     Dosage: UNK
  4. LIDOCAINE [Concomitant]
     Active Substance: LIDOCAINE
     Dosage: UNK
  5. BUPIVACAINE [Concomitant]
     Active Substance: BUPIVACAINE
     Dosage: UNK

REACTIONS (2)
  - Impaired healing [Recovered/Resolved]
  - Off label use [Unknown]
